FAERS Safety Report 8576446-7 (Version None)
Quarter: 2012Q3

REPORT INFORMATION
  Report Type: 
  Country: None (occurrence: None)
  Receive Date: 20120725
  Receipt Date: 20120712
  Transmission Date: 20120928
  Serious: Yes (Other)
  Sender: FDA-Public Use
  Company Number: 1207-372

PATIENT

DRUGS (1)
  1. EYLEA [Suspect]

REACTIONS (2)
  - VISUAL ACUITY REDUCED [None]
  - VITRITIS [None]
